FAERS Safety Report 8987748 (Version 1)
Quarter: 2012Q4

REPORT INFORMATION
  Report Type: 
  Country: US (occurrence: US)
  Receive Date: 20121227
  Receipt Date: 20121227
  Transmission Date: 20130627
  Serious: No
  Sender: FDA-Public Use
  Company Number: US-009507513-1212USA009819

PATIENT
  Age: 49 Year
  Sex: Male
  Weight: 177.78 kg

DRUGS (5)
  1. JANUVIA [Suspect]
     Indication: BLOOD GLUCOSE
     Dosage: 100 mg, qd
     Route: 048
     Dates: start: 20121101
  2. ATENOLOL [Concomitant]
     Dosage: 50 mg, UNK
  3. METFORMIN [Concomitant]
     Dosage: 100 ml, bid
  4. HYDROCHLOROTHIAZIDE (+) LOSARTAN POTASSIUM [Concomitant]
     Dosage: 100 mg, qd
  5. PIOGLITAZONE HYDROCHLORIDE [Concomitant]
     Dosage: 30 mg, qd

REACTIONS (3)
  - Weight increased [Unknown]
  - Oedema peripheral [Unknown]
  - Fluid retention [Unknown]
